FAERS Safety Report 6609476-2 (Version None)
Quarter: 2010Q1

REPORT INFORMATION
  Report Type: 
  Country: None (occurrence: None)
  Receive Date: 20100302
  Receipt Date: 20100219
  Transmission Date: 20100710
  Serious: Yes (Hospitalization)
  Sender: FDA-Public Use
  Company Number: US-JNJFOC-20100209992

PATIENT
  Sex: Male
  Weight: 95.26 kg

DRUGS (24)
  1. FENTANYL-100 [Suspect]
     Indication: FIBROMYALGIA
     Dosage: NDC NUMBER# 0781-7113-55
     Route: 062
  2. FENTANYL-100 [Suspect]
     Indication: RHEUMATOID ARTHRITIS
     Dosage: NDC NUMBER# 0781-7113-55
     Route: 062
  3. FENTANYL-100 [Suspect]
     Dosage: NDC NUMBER# 0781-7113-55
     Route: 062
  4. FENTANYL-100 [Suspect]
     Dosage: NDC NUMBER# 0781-7113-55
     Route: 062
  5. PERCOCET [Concomitant]
     Indication: BREAKTHROUGH PAIN
     Route: 048
  6. REMERON [Concomitant]
     Indication: BIPOLAR DISORDER
     Route: 048
  7. SEROQUEL [Concomitant]
     Indication: BIPOLAR DISORDER
     Dosage: 100MG AND 300MG
     Route: 048
  8. SINGULAIR [Concomitant]
     Indication: MULTIPLE ALLERGIES
     Route: 048
  9. TOPAMAX [Concomitant]
     Indication: BIPOLAR DISORDER
     Route: 048
  10. FLONASE [Concomitant]
     Indication: MULTIPLE ALLERGIES
     Route: 045
  11. PROCHLORPERAZINE [Concomitant]
     Indication: NAUSEA
     Route: 048
  12. ZOFRAN [Concomitant]
     Indication: NAUSEA
     Route: 048
  13. HYDROXYZINE [Concomitant]
     Indication: ANXIETY
     Route: 048
  14. PRILOSEC [Concomitant]
     Indication: DYSPEPSIA
     Route: 048
  15. SYMBICORT [Concomitant]
     Indication: ASTHMA
     Route: 055
  16. ALBUTEROL [Concomitant]
     Indication: ASTHMA
     Route: 055
  17. FLEXERIL [Concomitant]
     Indication: MUSCLE SPASMS
     Route: 048
  18. FAMOTIDINE [Concomitant]
     Indication: GASTROOESOPHAGEAL REFLUX DISEASE
     Route: 048
  19. UROCIT-K [Concomitant]
     Indication: NEPHROLITHIASIS
     Route: 048
  20. FERROUS SULFATE TAB [Concomitant]
     Indication: DRUG USE FOR UNKNOWN INDICATION
     Route: 048
  21. FELODIPINE [Concomitant]
     Indication: HYPERTENSION
     Route: 048
  22. AURODEX [Concomitant]
     Indication: EAR DISORDER
     Route: 001
  23. AMBIEN [Concomitant]
     Indication: SLEEP DISORDER
     Route: 048
  24. ASPIRIN [Concomitant]
     Indication: CARDIAC DISORDER
     Route: 048

REACTIONS (6)
  - DEVICE FAILURE [None]
  - FIBROMYALGIA [None]
  - LUNG INFECTION [None]
  - NEPHROLITHIASIS [None]
  - PNEUMONIA [None]
  - THERAPEUTIC RESPONSE DECREASED [None]
